FAERS Safety Report 6335206-8 (Version None)
Quarter: 2009Q3

REPORT INFORMATION
  Report Type: 
  Country: None (occurrence: None)
  Receive Date: 20090831
  Receipt Date: 20090819
  Transmission Date: 20100115
  Serious: Yes (Other)
  Sender: FDA-Public Use
  Company Number: US-PFIZER INC-2009257839

PATIENT
  Sex: Female
  Weight: 60.317 kg

DRUGS (3)
  1. SUNITINIB MALATE [Suspect]
     Indication: RENAL CELL CARCINOMA
     Dosage: 50 MG, 1X/DAY
     Dates: start: 20090710, end: 20090729
  2. LEXAPRO [Concomitant]
     Indication: DEPRESSION
     Dosage: UNK
  3. MULTI-VITAMINS [Concomitant]
     Dosage: UNK

REACTIONS (11)
  - CONSTIPATION [None]
  - DIARRHOEA [None]
  - DYSGEUSIA [None]
  - FLUID IMBALANCE [None]
  - HYPERSOMNIA [None]
  - HYPERTENSION [None]
  - INCOHERENT [None]
  - MEMORY IMPAIRMENT [None]
  - PRURITUS [None]
  - VOMITING [None]
  - WEIGHT INCREASED [None]
